FAERS Safety Report 5840941-1 (Version None)
Quarter: 2008Q3

REPORT INFORMATION
  Report Type: 
  Country: None (occurrence: None)
  Receive Date: 20080731
  Receipt Date: 20080516
  Transmission Date: 20090109
  Serious: No
  Sender: FDA-Public Use
  Company Number: US200805003567

PATIENT
  Age: 67 Year
  Sex: Male
  Weight: 95.2 kg

DRUGS (9)
  1. BYETTA [Suspect]
     Indication: INSULIN-REQUIRING TYPE 2 DIABETES MELLITUS
     Dosage: 5 UG, 2/D, SUBCUTANEOUS; 10 UG, 2/D, SUBCUTANEOUS
     Route: 058
     Dates: start: 20060101
  2. . [Concomitant]
  3. . [Concomitant]
  4. . [Concomitant]
  5. LANTUS [Concomitant]
  6. COREG [Concomitant]
  7. MICARDIS /USA/ (TELMISARTAN) [Concomitant]
  8. LIPITOR [Concomitant]
  9. NIACIN [Concomitant]

REACTIONS (6)
  - ABDOMINAL PAIN [None]
  - DYSPEPSIA [None]
  - HIGH DENSITY LIPOPROTEIN DECREASED [None]
  - NAUSEA [None]
  - VOMITING [None]
  - WEIGHT DECREASED [None]
